FAERS Safety Report 10449634 (Version 2)
Quarter: 2014Q3

REPORT INFORMATION
  Report Type: Spontaneous
  Country: US (occurrence: US)
  Receive Date: 20140912
  Receipt Date: 20140912
  Transmission Date: 20150326
  Serious: No
  Sender: FDA-Public Use
  Company Number: US-INCYTE CORPORATION-2014IN001180

PATIENT
  Sex: Female

DRUGS (10)
  1. JAKAFI [Suspect]
     Active Substance: RUXOLITINIB
     Dosage: 15 MG, QD
     Route: 048
     Dates: start: 20130123
  2. HYDROXYUREA. [Concomitant]
     Active Substance: HYDROXYUREA
  3. OSCAL                              /07357001/ [Concomitant]
  4. SIMVASTATIN. [Concomitant]
     Active Substance: SIMVASTATIN
  5. JAKAFI [Suspect]
     Active Substance: RUXOLITINIB
     Indication: MYELOFIBROSIS
     Dosage: 15 MG, QD
     Route: 048
     Dates: start: 20130123
  6. NITRO-DUR [Concomitant]
     Active Substance: NITROGLYCERIN
  7. JAKAFI [Suspect]
     Active Substance: RUXOLITINIB
     Dosage: 7.5 MG, QD (1/2  OF 15 MG )
     Route: 048
  8. TYLENOL [Concomitant]
     Active Substance: ACETAMINOPHEN
  9. ATENOLOL. [Concomitant]
     Active Substance: ATENOLOL
  10. MULTIVITAMIN                       /00097801/ [Concomitant]
     Active Substance: VITAMINS

REACTIONS (2)
  - Wrong technique in drug usage process [Not Recovered/Not Resolved]
  - Transfusion [Unknown]
